FAERS Safety Report 4535532-9 (Version None)
Quarter: 2004Q4

REPORT INFORMATION
  Report Type: 
  Country: None (occurrence: None)
  Receive Date: 20041214
  Receipt Date: 20040913
  Transmission Date: 20050328
  Serious: No
  Sender: FDA-Public Use
  Company Number: USA040977987

PATIENT
  Age: 55 Year
  Sex: Male

DRUGS (5)
  1. STRATTERA [Suspect]
     Indication: ATTENTION DEFICIT/HYPERACTIVITY DISORDER
     Dosage: 40 MG/2 DAY
  2. CIALIS [Suspect]
     Indication: ERECTILE DYSFUNCTION
  3. FLOMAX ^BOEHRINGER INGELHEIM^ (TAMSULOSIN HYDROCHLORIDE) [Concomitant]
  4. PROPECIA [Concomitant]
  5. DIPHENHYDROMAINE HYDROCHLORIDE [Concomitant]

REACTIONS (4)
  - DRUG INEFFECTIVE [None]
  - LETHARGY [None]
  - MIDDLE INSOMNIA [None]
  - URINARY HESITATION [None]
